FAERS Safety Report 14182150 (Version 2)
Quarter: 2017Q4

REPORT INFORMATION
  Report Type: Report from Study
  Country: FR (occurrence: FR)
  Receive Date: 20171113
  Receipt Date: 20171115
  Transmission Date: 20180321
  Serious: Yes (Hospitalization, Other)
  Sender: FDA-Public Use
  Company Number: FR-BRISTOL-MYERS SQUIBB COMPANY-BMS-2017-100826

PATIENT
  Age: 71 Year
  Sex: Male

DRUGS (2)
  1. TIVOZANIB [Suspect]
     Active Substance: TIVOZANIB
     Indication: METASTATIC RENAL CELL CARCINOMA
     Dosage: 1.5 MG, UNK
     Route: 065
     Dates: start: 20170718
  2. NIVOLUMAB [Suspect]
     Active Substance: NIVOLUMAB
     Indication: METASTATIC RENAL CELL CARCINOMA
     Dosage: 240 MG, UNK
     Route: 065
     Dates: start: 20170718

REACTIONS (2)
  - Pneumonia [Not Recovered/Not Resolved]
  - Acute coronary syndrome [Not Recovered/Not Resolved]

NARRATIVE: CASE EVENT DATE: 20171105
